FAERS Safety Report 4865726-4 (Version None)
Quarter: 2005Q4

REPORT INFORMATION
  Report Type: 
  Country: None (occurrence: None)
  Receive Date: 20051220
  Receipt Date: 20051209
  Transmission Date: 20060501
  Serious: Yes (Death, Other)
  Sender: FDA-Public Use
  Company Number: B0402659A

PATIENT
  Age: 68 Year
  Sex: Female
  Weight: 47.8998 kg

DRUGS (3)
  1. ALKERAN [Suspect]
     Indication: MULTIPLE MYELOMA
     Dosage: ORAL
     Route: 048
  2. PREDONINE [Concomitant]
  3. THALIDOMIDE [Concomitant]

REACTIONS (9)
  - ARTHRITIS INFECTIVE [None]
  - BLOOD LACTATE DEHYDROGENASE INCREASED [None]
  - BONE PAIN [None]
  - CARDIAC FAILURE CONGESTIVE [None]
  - DRUG INEFFECTIVE [None]
  - DRUG TOXICITY [None]
  - METASTASIS [None]
  - MYELODYSPLASTIC SYNDROME [None]
  - RESPIRATORY TRACT INFECTION [None]
